FAERS Safety Report 5985958-1 (Version None)
Quarter: 2008Q4

REPORT INFORMATION
  Report Type: 
  Country: None (occurrence: None)
  Receive Date: 20081205
  Receipt Date: 20081205
  Transmission Date: 20090506
  Serious: Yes (Hospitalization, Other)
  Sender: FDA-Public Use
  Company Number: None

PATIENT
  Age: 61 Year
  Sex: Male
  Weight: 100 kg

DRUGS (6)
  1. IRINOTECAN SOLUTION FOR INFUSION [Suspect]
     Indication: COLORECTAL CANCER METASTATIC
     Dosage: 180 MG/M**2 Q2W IV
     Route: 042
     Dates: start: 20081014, end: 20081014
  2. PLACEBO SOLUTION FOR INFUSION [Suspect]
     Indication: COLORECTAL CANCER METASTATIC
     Dosage: 4 MG/KG Q2W IV
     Route: 042
     Dates: start: 20081014, end: 20081014
  3. FLUOROURACIL [Suspect]
     Indication: COLORECTAL CANCER METASTATIC
     Dosage: 2800 MG/M**2 Q2W IV
     Route: 042
     Dates: start: 20081014
  4. LEUCOVORIN SOLUTION FOR INFUSION [Suspect]
     Indication: COLORECTAL CANCER METASTATIC
     Dosage: 400 MG/M**2 Q2W IV
     Route: 042
     Dates: start: 20081014, end: 20081014
  5. ASPIRIN [Concomitant]
  6. MODURETIC 5-50 [Concomitant]

REACTIONS (8)
  - ARTERIOSCLEROSIS [None]
  - HYPERCHOLESTEROLAEMIA [None]
  - HYPOTENSION [None]
  - HYPOVOLAEMIC SHOCK [None]
  - LEFT VENTRICULAR HYPERTROPHY [None]
  - MYOCARDIAL ISCHAEMIA [None]
  - PERICARDITIS [None]
  - VOMITING [None]
